FAERS Safety Report 5316464-5 (Version None)
Quarter: 2007Q2

REPORT INFORMATION
  Report Type: 
  Country: None (occurrence: None)
  Receive Date: 20070504
  Receipt Date: 20070427
  Transmission Date: 20071010
  Serious: Yes (Hospitalization, Other)
  Sender: FDA-Public Use
  Company Number: PHHO2007US06900

PATIENT
  Age: 40 Year
  Sex: Male
  Weight: 75.9 kg

DRUGS (2)
  1. CERTICAN [Suspect]
     Indication: RENAL TRANSPLANT
     Dosage: 1.5 MG, BID
     Route: 048
     Dates: start: 20070206, end: 20070409
  2. NEORAL [Suspect]
     Indication: RENAL TRANSPLANT
     Dosage: 125 MG, BID
     Route: 048

REACTIONS (5)
  - BLOOD CREATININE INCREASED [None]
  - GAIT DISTURBANCE [None]
  - LYMPHOCELE [None]
  - OEDEMA PERIPHERAL [None]
  - SEROMA [None]
